FAERS Safety Report 4921064-2 (Version None)
Quarter: 2006Q1

REPORT INFORMATION
  Report Type: 
  Country: None (occurrence: None)
  Receive Date: 20060223
  Receipt Date: 20051003
  Transmission Date: 20060701
  Serious: Yes (Other)
  Sender: FDA-Public Use
  Company Number: US-MERCK-0510USA02590

PATIENT
  Age: 49 Year
  Sex: Female

DRUGS (1)
  1. VIOXX [Suspect]
     Route: 048

REACTIONS (8)
  - CELLULITIS [None]
  - CONTUSION [None]
  - CORONARY ARTERY DISEASE [None]
  - CSF TEST ABNORMAL [None]
  - FALL [None]
  - HYPERTENSION [None]
  - ISCHAEMIC STROKE [None]
  - WOUND INFECTION [None]
